FAERS Safety Report 5125347-5 (Version None)
Quarter: 2006Q4

REPORT INFORMATION
  Report Type: 
  Country: None (occurrence: None)
  Receive Date: 20061006
  Receipt Date: 20060923
  Transmission Date: 20070319
  Serious: Yes (Other)
  Sender: FDA-Public Use
  Company Number: 2006092850

PATIENT
  Sex: Female

DRUGS (4)
  1. LYRICA [Suspect]
     Indication: MULTIPLE SCLEROSIS
  2. LYRICA [Suspect]
     Indication: MUSCULAR DYSTROPHY
  3. VALIUM [Suspect]
     Dosage: (5 MG)
  4. ALL OTHER THERAPEUTIC PRODUCTS (ALL OTHER THERAPEUTIC PRODUCTS) [Suspect]

REACTIONS (1)
  - PARAPLEGIA [None]
